FAERS Safety Report 18437727 (Version 1)
Quarter: 2020Q4

REPORT INFORMATION
  Report Type: Spontaneous
  Country: US (occurrence: US)
  Receive Date: 20201028
  Receipt Date: 20201028
  Transmission Date: 20210114
  Serious: Yes (Other)
  Sender: FDA-Public Use
  Company Number: US-PFIZER INC-2020409136

PATIENT
  Age: 53 Year
  Sex: Male

DRUGS (2)
  1. CALCIUM CHLORIDE. [Suspect]
     Active Substance: CALCIUM CHLORIDE
     Indication: SUPRAVENTRICULAR TACHYCARDIA
     Dosage: 1 G
     Route: 040
  2. NORMAL SALINE [Concomitant]
     Active Substance: SODIUM CHLORIDE
     Dosage: UNK

REACTIONS (2)
  - Ventricular fibrillation [Unknown]
  - Torsade de pointes [Unknown]
